FAERS Safety Report 12742145 (Version 1)
Quarter: 2016Q3

REPORT INFORMATION
  Report Type: Spontaneous
  Country: US (occurrence: US)
  Receive Date: 20160914
  Receipt Date: 20160914
  Transmission Date: 20161109
  Serious: No
  Sender: FDA-Public Use
  Company Number: None

PATIENT
  Age: 58 Year
  Sex: Female
  Weight: 89.1 kg

DRUGS (9)
  1. TRINTELLIX [Suspect]
     Active Substance: VORTIOXETINE HYDROBROMIDE
     Indication: COGNITIVE DISORDER
     Dosage: 1 TABLET ORAL
     Route: 048
     Dates: start: 20160903, end: 20160911
  2. VITAMIN D [Concomitant]
     Active Substance: CHOLECALCIFEROL
  3. TRINTELLIX [Suspect]
     Active Substance: VORTIOXETINE HYDROBROMIDE
     Indication: MEMORY IMPAIRMENT
     Dosage: 1 TABLET ORAL
     Route: 048
     Dates: start: 20160903, end: 20160911
  4. TRAZODONE [Concomitant]
     Active Substance: TRAZODONE HYDROCHLORIDE
  5. IRON [Concomitant]
     Active Substance: IRON
  6. TRINTELLIX [Suspect]
     Active Substance: VORTIOXETINE HYDROBROMIDE
     Indication: DEPRESSION
     Dosage: 1 TABLET ORAL
     Route: 048
     Dates: start: 20160903, end: 20160911
  7. CELEXA [Concomitant]
     Active Substance: CITALOPRAM HYDROBROMIDE
  8. KLONOPIN [Concomitant]
     Active Substance: CLONAZEPAM
  9. VITAMIN B12 [Concomitant]
     Active Substance: CYANOCOBALAMIN

REACTIONS (5)
  - Discomfort [None]
  - Movement disorder [None]
  - Crying [None]
  - Depression [None]
  - Asthenia [None]

NARRATIVE: CASE EVENT DATE: 20160911
